FAERS Safety Report 18221508 (Version 6)
Quarter: 2022Q3

REPORT INFORMATION
  Report Type: Spontaneous
  Country: US (occurrence: US)
  Receive Date: 20200902
  Receipt Date: 20220928
  Transmission Date: 20221027
  Serious: Yes (Other)
  Sender: FDA-Public Use
  Company Number: US-PFIZER INC-2020338983

PATIENT
  Age: 75 Year
  Sex: Female

DRUGS (1)
  1. XELJANZ XR [Suspect]
     Active Substance: TOFACITINIB CITRATE
     Dosage: 11 MG
     Route: 048

REACTIONS (9)
  - Knee operation [Unknown]
  - Memory impairment [Not Recovered/Not Resolved]
  - Nervousness [Unknown]
  - Pain [Unknown]
  - Malaise [Unknown]
  - Stress [Unknown]
  - Sensitivity to weather change [Unknown]
  - Bradyphrenia [Unknown]
  - Feeling abnormal [Unknown]

NARRATIVE: CASE EVENT DATE: 20200901
